FAERS Safety Report 24685806 (Version 1)
Quarter: 2024Q4

REPORT INFORMATION
  Report Type: Spontaneous
  Country: US (occurrence: None)
  Receive Date: 20241129
  Receipt Date: 20241129
  Transmission Date: 20250114
  Serious: Yes (Hospitalization)
  Sender: Public
  Company Number: None

PATIENT
  Sex: Male

DRUGS (6)
  1. COSENTYX [Suspect]
     Active Substance: SECUKINUMAB
     Indication: Psoriasis
     Dosage: FREQUENCY : MONTHLY;?
     Route: 058
     Dates: start: 20160506
  2. AVELOX TAB 400MG [Concomitant]
  3. HG VALERATE CRE 0.2% [Concomitant]
  4. METHOCARBAM TAB 500MG [Concomitant]
  5. NAPROXEN [Concomitant]
     Active Substance: NAPROXEN
  6. VECTICAL OIN 3MCG/GM [Concomitant]

REACTIONS (3)
  - Guillain-Barre syndrome [None]
  - Parasite blood test positive [None]
  - Arthralgia [None]
